FAERS Safety Report 7472980-1 (Version None)
Quarter: 2011Q2

REPORT INFORMATION
  Report Type: 
  Country: None (occurrence: None)
  Receive Date: 20110511
  Receipt Date: 20110427
  Transmission Date: 20111010
  Serious: Yes (Other)
  Sender: FDA-Public Use
  Company Number: PHHY2011ES35393

PATIENT
  Age: 46 Year
  Sex: Male

DRUGS (8)
  1. OMEPRAZOLE [Concomitant]
  2. AKINETON [Concomitant]
  3. RIVOTRIL [Concomitant]
     Dosage: 0.5 MG
  4. CLOZAPINE [Suspect]
     Indication: PSYCHOTIC DISORDER
     Dosage: 400 MG, DAILY
     Route: 048
     Dates: start: 20090903, end: 20101017
  5. ATROVENT [Concomitant]
     Dosage: 20 UG,
  6. ZYPREXA [Concomitant]
  7. DIAZEPAM [Concomitant]
  8. MOVIPREP [Concomitant]

REACTIONS (1)
  - HYPOGLYCAEMIA [None]
